FAERS Safety Report 19743146 (Version 1)
Quarter: 2021Q3

REPORT INFORMATION
  Report Type: Spontaneous
  Country: US (occurrence: US)
  Receive Date: 20210823
  Receipt Date: 20210823
  Transmission Date: 20211014
  Serious: No
  Sender: FDA-Public Use
  Company Number: None

PATIENT
  Age: 35 Year
  Sex: Female

DRUGS (8)
  1. MEDICAL MARIJUANA [Concomitant]
     Active Substance: CANNABIS SATIVA SUBSP. INDICA TOP
  2. VITANIN B12 50MG WEEKLY [Concomitant]
  3. ESOMEARAZOLE [Concomitant]
  4. HYDROCORIISONE SUPPOSITORY ONCE DAILY [Concomitant]
  5. VITAMIN D 50000 UNITS WEEKLY [Concomitant]
  6. STELARA [Suspect]
     Active Substance: USTEKINUMAB
     Indication: COLITIS ULCERATIVE
     Dosage: OTHER FREQUENCY:EVERY 8 WEEKS;?
     Route: 058
     Dates: start: 20200603
  7. CLONAZEPAM 1MG PO TID PRN  MAGNESIUM [Concomitant]
     Route: 048
  8. ZOFRAN [Concomitant]
     Active Substance: ONDANSETRON HYDROCHLORIDE

REACTIONS (3)
  - Vomiting [None]
  - Lethargy [None]
  - Nausea [None]

NARRATIVE: CASE EVENT DATE: 20210603
